FAERS Safety Report 5955518-7 (Version None)
Quarter: 2008Q4

REPORT INFORMATION
  Report Type: 
  Country: None (occurrence: None)
  Receive Date: 20081113
  Receipt Date: 20081104
  Transmission Date: 20090506
  Serious: Yes (Other)
  Sender: FDA-Public Use
  Company Number: IT-2008-1020

PATIENT
  Age: 70 Year
  Sex: Male

DRUGS (4)
  1. NAVELBINE [Suspect]
     Indication: NON-SMALL CELL LUNG CANCER
     Dates: start: 20081021, end: 20081027
  2. CISPLATIN [Suspect]
     Indication: NON-SMALL CELL LUNG CANCER
     Dates: start: 20081021, end: 20081027
  3. PLASIL [Concomitant]
  4. FLUTICASONE PROPIONATE [Concomitant]

REACTIONS (4)
  - ASTHENIA [None]
  - DYSPEPSIA [None]
  - NEUTROPENIA [None]
  - THROMBOCYTOPENIA [None]
